FAERS Safety Report 5827611-0 (Version None)
Quarter: 2008Q3

REPORT INFORMATION
  Report Type: 
  Country: None (occurrence: None)
  Receive Date: 20080730
  Receipt Date: 20080728
  Transmission Date: 20090109
  Serious: Yes (Hospitalization, Other)
  Sender: FDA-Public Use
  Company Number: JP-BOEHRINGER INGELHEIM GMBH, GERMANY-2008-BP-11591NB

PATIENT
  Age: 53 Year
  Sex: Female

DRUGS (3)
  1. SPIRIVA [Suspect]
     Route: 055
     Dates: end: 20080723
  2. THEO-DUR [Concomitant]
     Route: 055
  3. HOKUNALIN: TAPE [Concomitant]
     Route: 062

REACTIONS (2)
  - ILEUS [None]
  - LEIOMYOSARCOMA [None]
